FAERS Safety Report 19233364 (Version 1)
Quarter: 2021Q2

REPORT INFORMATION
  Report Type: Spontaneous
  Country: US (occurrence: US)
  Receive Date: 20210507
  Receipt Date: 20210507
  Transmission Date: 20210717
  Serious: No
  Sender: FDA-Public Use
  Company Number: US-LUNDBECK-DKLU3031481

PATIENT
  Age: 50 Year
  Sex: Female

DRUGS (2)
  1. NORTHERA [Suspect]
     Active Substance: DROXIDOPA
     Indication: CARDIOVASCULAR DISORDER
     Route: 048
     Dates: start: 202103
  2. NORTHERA [Suspect]
     Active Substance: DROXIDOPA
     Indication: RESPIRATORY DISORDER

REACTIONS (1)
  - Product use in unapproved indication [Unknown]
